FAERS Safety Report 4302964-3 (Version None)
Quarter: 2004Q1

REPORT INFORMATION
  Report Type: 
  Country: None (occurrence: None)
  Receive Date: 20040223
  Receipt Date: 20040223
  Transmission Date: 20041129
  Serious: No
  Sender: FDA-Public Use
  Company Number: None

PATIENT
  Age: 55 Year
  Sex: Female
  Weight: 70.7611 kg

DRUGS (1)
  1. ZOLOFT [Suspect]
     Dosage: 1 PER DAY TABLET ORAL
     Route: 048
     Dates: start: 20040218, end: 20040221

REACTIONS (2)
  - ARTHRALGIA [None]
  - FLUID RETENTION [None]
